FAERS Safety Report 7452287-9 (Version None)
Quarter: 2011Q2

REPORT INFORMATION
  Report Type: 
  Country: None (occurrence: None)
  Receive Date: 20110502
  Receipt Date: 20110426
  Transmission Date: 20111010
  Serious: Yes (Life-Threatening, Hospitalization)
  Sender: FDA-Public Use
  Company Number: GB-BAXTER-2011BH013411

PATIENT
  Age: 33 Year
  Sex: Female

DRUGS (7)
  1. CYCLOPHOSPHAMIDE [Suspect]
     Indication: BREAST CANCER
     Route: 042
     Dates: start: 20110318, end: 20110318
  2. DOCETAXEL [Suspect]
     Indication: BREAST CANCER
     Route: 042
     Dates: start: 20110318, end: 20110318
  3. DOMPERIDONE [Concomitant]
     Indication: NAUSEA
     Route: 048
     Dates: start: 20110318, end: 20110326
  4. DEXAMETHASONE [Concomitant]
     Indication: CHEMOTHERAPY
     Route: 048
     Dates: start: 20110318, end: 20110326
  5. DOXORUBICIN GENERIC [Suspect]
     Indication: BREAST CANCER
     Route: 042
     Dates: start: 20110318, end: 20110318
  6. FILGRASTIM [Concomitant]
     Indication: CHEMOTHERAPY
     Route: 058
     Dates: start: 20110320, end: 20110326
  7. TEMAZEPAM [Concomitant]
     Indication: PRODUCT USED FOR UNKNOWN INDICATION
     Route: 048
     Dates: end: 20110326

REACTIONS (3)
  - TACHYCARDIA [None]
  - INTESTINAL ISCHAEMIA [None]
  - PLEURAL EFFUSION [None]
